FAERS Safety Report 11414552 (Version 1)
Quarter: 2015Q3

REPORT INFORMATION
  Report Type: Spontaneous
  Country: US (occurrence: None)
  Receive Date: 20150824
  Receipt Date: 20150824
  Transmission Date: 20151125
  Serious: Yes (Death, Hospitalization)
  Sender: FDA-Public Use
  Company Number: None

PATIENT
  Age: 65 Year
  Sex: Male
  Weight: 76.7 kg

DRUGS (2)
  1. CYTARABINE. [Suspect]
     Active Substance: CYTARABINE
     Dates: end: 20150814
  2. DAUNORUBICIN [Suspect]
     Active Substance: DAUNORUBICIN
     Dates: end: 20140814

REACTIONS (6)
  - Cardiac arrest [None]
  - Unresponsive to stimuli [None]
  - Hypopnoea [None]
  - Hyperventilation [None]
  - Pulse absent [None]
  - Vomiting [None]

NARRATIVE: CASE EVENT DATE: 20150814
